FAERS Safety Report 9579834 (Version 2)
Quarter: 2013Q4

REPORT INFORMATION
  Report Type: Report from Study
  Country: DE (occurrence: DE)
  Receive Date: 20131002
  Receipt Date: 20131002
  Transmission Date: 20140711
  Serious: Yes (Hospitalization)
  Sender: FDA-Public Use
  Company Number: DE-009507513-1308DEU007951

PATIENT
  Age: 58 Year
  Sex: Female
  Weight: 68 kg

DRUGS (10)
  1. BOCEPREVIR [Suspect]
     Indication: HEPATITIS C
     Dosage: 2400 MG PER DAY
     Route: 048
     Dates: start: 20130503
  2. PEGINTRON [Suspect]
     Indication: CHRONIC HEPATITIS C
     Dosage: 100 MICROGRAM PER KILOGRAM, QW
     Route: 058
     Dates: start: 20130330, end: 20130524
  3. PEGINTRON [Suspect]
     Dosage: 80 MICROGRAM PER KILOGRAM, QW
     Route: 058
     Dates: start: 20130524, end: 20130607
  4. PEGINTRON [Suspect]
     Dosage: 90 MICROGRAM PER KILOGRAM, QW
     Route: 058
     Dates: start: 20130607, end: 20130719
  5. PEGINTRON [Suspect]
     Dosage: 100 MICROGRAM PER KILOGRAM, QW
     Route: 058
     Dates: start: 20130719
  6. REBETOL [Suspect]
     Indication: HEPATITIS C
     Dosage: 1000 MG PER DAY
     Route: 048
     Dates: start: 20130330, end: 20130620
  7. REBETOL [Suspect]
     Dosage: 800 MG, PER DAY
     Dates: start: 20130620
  8. FELODIPINE [Concomitant]
  9. ENALAPRIL MALEATE [Concomitant]
  10. METOPROLOL [Concomitant]

REACTIONS (4)
  - Hyperthyroidism [Not Recovered/Not Resolved]
  - Long QT syndrome [Recovered/Resolved]
  - Neutropenia [Recovered/Resolved]
  - Neutropenia [Recovered/Resolved]
